FAERS Safety Report 8823681 (Version 1)
Quarter: 2012Q4

REPORT INFORMATION
  Report Type: 
  Country: US (occurrence: US)
  Receive Date: 20121003
  Receipt Date: 20121003
  Transmission Date: 20130627
  Serious: Yes (Death)
  Sender: FDA-Public Use
  Company Number: CHPA2012US020576

PATIENT
  Age: 79 Year
  Sex: Female

DRUGS (1)
  1. EXCEDRIN EXTRA STRENGTH [Suspect]
     Indication: PAIN
     Dosage: 2 DF, Unk
     Route: 048
     Dates: end: 2011

REACTIONS (2)
  - Neoplasm malignant [Fatal]
  - Concomitant disease aggravated [Fatal]
